FAERS Safety Report 19983588 (Version 1)
Quarter: 2021Q4

REPORT INFORMATION
  Report Type: Spontaneous
  Country: US (occurrence: US)
  Receive Date: 20211021
  Receipt Date: 20211021
  Transmission Date: 20220303
  Serious: No
  Sender: FDA-Public Use
  Company Number: None

PATIENT
  Sex: Female

DRUGS (2)
  1. AUSTEDO [Suspect]
     Active Substance: DEUTETRABENAZINE
     Indication: Alcohol abuse
     Route: 048
     Dates: start: 202109
  2. AUSTEDO [Suspect]
     Active Substance: DEUTETRABENAZINE
     Indication: Major depression

REACTIONS (2)
  - Face oedema [None]
  - Localised oedema [None]
